FAERS Safety Report 19405314 (Version 1)
Quarter: 2021Q2

REPORT INFORMATION
  Report Type: Spontaneous
  Country: US (occurrence: US)
  Receive Date: 20210611
  Receipt Date: 20210611
  Transmission Date: 20210717
  Serious: Yes (Hospitalization, Other)
  Sender: FDA-Public Use
  Company Number: US-SUN PHARMACEUTICAL INDUSTRIES LTD-2021R1-298408

PATIENT
  Age: 48 Year
  Sex: Female

DRUGS (2)
  1. LISINOPRIL. [Suspect]
     Active Substance: LISINOPRIL
     Indication: HYPERTENSION
     Dosage: 40 MILLIGRAM, DAILY
     Route: 065
  2. LITHIUM. [Suspect]
     Active Substance: LITHIUM
     Indication: BIPOLAR DISORDER
     Dosage: 900 MILLIGRAM, DAILY (EVERY EVENING)
     Route: 065

REACTIONS (5)
  - Toxicity to various agents [Unknown]
  - Electrocardiogram abnormal [Unknown]
  - Brugada syndrome [Unknown]
  - Drug interaction [Unknown]
  - Acute kidney injury [Recovering/Resolving]
